APPROVED DRUG PRODUCT: LEUCOVORIN CALCIUM
Active Ingredient: LEUCOVORIN CALCIUM
Strength: EQ 60MG BASE/VIAL
Dosage Form/Route: FOR SOLUTION;ORAL
Application: N008107 | Product #003
Applicant: HOSPIRA INC
Approved: Jan 30, 1987 | RLD: No | RS: No | Type: DISCN